FAERS Safety Report 8172893-6 (Version None)
Quarter: 2012Q1

REPORT INFORMATION
  Report Type: 
  Country: None (occurrence: None)
  Receive Date: 20120223
  Receipt Date: 20120209
  Transmission Date: 20120608
  Serious: Yes (Other)
  Sender: FDA-Public Use
  Company Number: JPI-P-019774

PATIENT
  Age: 49 Year
  Sex: Female
  Weight: 57.6068 kg

DRUGS (2)
  1. XYREM [Suspect]
     Indication: NARCOLEPSY
     Dosage: ORAL, 7.5 GM (3.75 GM, 2 IN 1 D), ORAL
     Route: 048
     Dates: end: 20120101
  2. XYREM [Suspect]
     Indication: NARCOLEPSY
     Dosage: ORAL, 7.5 GM (3.75 GM, 2 IN 1 D), ORAL
     Route: 048
     Dates: start: 20110119

REACTIONS (4)
  - WEIGHT DECREASED [None]
  - BREAST HAEMORRHAGE [None]
  - PAIN [None]
  - SUTURE RELATED COMPLICATION [None]
